FAERS Safety Report 8833357 (Version 1)
Quarter: 2012Q4

REPORT INFORMATION
  Report Type: 
  Country: US (occurrence: US)
  Receive Date: 20121010
  Receipt Date: 20121010
  Transmission Date: 20130627
  Serious: No
  Sender: FDA-Public Use
  Company Number: US-009507513-1209USA011427

PATIENT
  Age: 71 Year
  Sex: Female

DRUGS (4)
  1. DULERA [Suspect]
     Indication: ASTHMA
     Dosage: 2 DF, bid
     Route: 055
     Dates: start: 20120516
  2. DULERA [Suspect]
     Indication: HYPERSENSITIVITY
  3. LOSARTAN POTASSIUM [Concomitant]
  4. PROAIR (ALBUTEROL SULFATE) [Concomitant]

REACTIONS (5)
  - Joint swelling [Not Recovered/Not Resolved]
  - Oedema peripheral [Not Recovered/Not Resolved]
  - Angiopathy [Not Recovered/Not Resolved]
  - Skin discolouration [Not Recovered/Not Resolved]
  - Respiratory disorder [Not Recovered/Not Resolved]
